FAERS Safety Report 4472666-1 (Version None)
Quarter: 2004Q4

REPORT INFORMATION
  Report Type: 
  Country: None (occurrence: None)
  Receive Date: 20041012
  Receipt Date: 20041012
  Transmission Date: 20050328
  Serious: Yes (Other)
  Sender: FDA-Public Use
  Company Number: None

PATIENT
  Age: 50 Year
  Sex: Female

DRUGS (1)
  1. IFOSFAMIDE [Suspect]

REACTIONS (3)
  - ADVERSE DRUG REACTION [None]
  - CONFUSIONAL STATE [None]
  - HALLUCINATION [None]
